FAERS Safety Report 15649631 (Version 1)
Quarter: 2018Q4

REPORT INFORMATION
  Report Type: Spontaneous
  Country: FI (occurrence: FI)
  Receive Date: 20181122
  Receipt Date: 20181122
  Transmission Date: 20190205
  Serious: Yes (Other)
  Sender: FDA-Public Use
  Company Number: FI-ABBVIE-18K-055-2564840-00

PATIENT
  Age: 12 Year
  Sex: Female

DRUGS (9)
  1. ADALIMUMAB [Suspect]
     Active Substance: ADALIMUMAB
     Indication: PRODUCT USED FOR UNKNOWN INDICATION
     Route: 058
     Dates: start: 201206, end: 201305
  2. HYDROXYCHLOROQUINE [Concomitant]
     Active Substance: HYDROXYCHLOROQUINE
     Indication: PRODUCT USED FOR UNKNOWN INDICATION
     Dates: end: 200903
  3. ADALIMUMAB [Suspect]
     Active Substance: ADALIMUMAB
     Route: 058
     Dates: start: 201305, end: 201505
  4. HYDROXYCHLOROQUINE [Concomitant]
     Active Substance: HYDROXYCHLOROQUINE
     Dates: start: 201105, end: 201610
  5. METHOTREXATE. [Concomitant]
     Active Substance: METHOTREXATE
     Indication: PRODUCT USED FOR UNKNOWN INDICATION
     Dates: start: 200710
  6. ADALIMUMAB [Suspect]
     Active Substance: ADALIMUMAB
     Route: 058
     Dates: start: 201505, end: 201703
  7. ADALIMUMAB [Suspect]
     Active Substance: ADALIMUMAB
     Route: 058
     Dates: start: 201712
  8. METHOTREXATE. [Concomitant]
     Active Substance: METHOTREXATE
     Dosage: INCREASED
     Dates: start: 201706
  9. METHOTREXATE. [Concomitant]
     Active Substance: METHOTREXATE
     Dosage: INCREASED
     Dates: start: 201710

REACTIONS (7)
  - Arthropathy [Unknown]
  - Arthritis [Unknown]
  - Knee deformity [Unknown]
  - Synovitis [Unknown]
  - Iritis [Recovering/Resolving]
  - Drug specific antibody [Recovered/Resolved]
  - Arthritis [Unknown]

NARRATIVE: CASE EVENT DATE: 201305
